FAERS Safety Report 10929560 (Version 1)
Quarter: 2015Q1

REPORT INFORMATION
  Report Type: Spontaneous
  Country: GR (occurrence: GR)
  Receive Date: 20150319
  Receipt Date: 20150319
  Transmission Date: 20150721
  Serious: Yes (Other)
  Sender: FDA-Public Use
  Company Number: GR-WATSON-2015-05007

PATIENT
  Age: 60 Year
  Sex: Male
  Weight: 61 kg

DRUGS (6)
  1. FISH OIL [Suspect]
     Active Substance: FISH OIL
     Indication: PRODUCT USED FOR UNKNOWN INDICATION
     Dosage: 10 ML, DAILY
     Route: 065
  2. COD LIVER OIL (UNKNOWN) [Interacting]
     Active Substance: COD LIVER OIL
     Indication: PRODUCT USED FOR UNKNOWN INDICATION
     Dosage: 5 ML, DAILY
     Route: 065
  3. LINSEED OIL [Interacting]
     Active Substance: LINSEED OIL
     Indication: PRODUCT USED FOR UNKNOWN INDICATION
     Dosage: 2 TABLE SPOONS DAILY
     Route: 065
  4. SPIRULINA /01514001/ [Interacting]
     Active Substance: SPIRULINA
     Indication: PRODUCT USED FOR UNKNOWN INDICATION
     Dosage: 2 DF, DAILY
     Route: 065
  5. PREDNISONE (UNKNOWN) [Suspect]
     Active Substance: PREDNISONE
     Indication: RESPIRATORY DISORDER
     Dosage: UNK
     Route: 065
  6. AMOXICILLIN/CLAVULANIC ACID [Concomitant]
     Active Substance: AMOXICILLIN\CLAVULANIC ACID
     Indication: RESPIRATORY DISORDER
     Dosage: UNK
     Route: 065

REACTIONS (2)
  - Drug interaction [Unknown]
  - Duodenal ulcer haemorrhage [Recovered/Resolved]
